FAERS Safety Report 18604725 (Version 1)
Quarter: 2020Q4

REPORT INFORMATION
  Report Type: Spontaneous
  Country: US (occurrence: US)
  Receive Date: 20201211
  Receipt Date: 20201211
  Transmission Date: 20210114
  Serious: Yes (Hospitalization)
  Sender: FDA-Public Use
  Company Number: US-SA-2020SA351030

PATIENT

DRUGS (5)
  1. LANTUS SOLOSTAR [Suspect]
     Active Substance: INSULIN GLARGINE
     Dosage: 150 IU IN MORNING
  2. LANTUS SOLOSTAR [Suspect]
     Active Substance: INSULIN GLARGINE
     Dosage: 156 IU AT BEDTIME
  3. LANTUS SOLOSTAR [Suspect]
     Active Substance: INSULIN GLARGINE
     Dosage: 15 IU AT BEDTIME
  4. NOVOLOG [Suspect]
     Active Substance: INSULIN ASPART
     Dosage: 80 IU BEFORE EACH MEAL
  5. NOVOLOG [Suspect]
     Active Substance: INSULIN ASPART
     Dosage: 4 TO 6 UNITS BEFORE EACH MEAL

REACTIONS (5)
  - Product administration error [Unknown]
  - Dysarthria [Unknown]
  - Prescribed overdose [Unknown]
  - Gait disturbance [Unknown]
  - Hypoglycaemia [Unknown]
